FAERS Safety Report 13456484 (Version 4)
Quarter: 2017Q2

REPORT INFORMATION
  Report Type: Report from Study
  Country: US (occurrence: US)
  Receive Date: 20170418
  Receipt Date: 20170530
  Transmission Date: 20170830
  Serious: Yes (Other)
  Sender: FDA-Public Use
  Company Number: US-JAZZ-2017-US-003712

PATIENT
  Sex: Male

DRUGS (3)
  1. XYREM [Suspect]
     Active Substance: SODIUM OXYBATE
     Indication: PRODUCT USED FOR UNKNOWN INDICATION
     Dosage: 3 G, BID
     Route: 048
     Dates: start: 200408, end: 2004
  2. XYREM [Suspect]
     Active Substance: SODIUM OXYBATE
     Dosage: DOSE ADJUSTMENT
     Route: 048
     Dates: start: 2004, end: 2014
  3. XYREM [Suspect]
     Active Substance: SODIUM OXYBATE
     Dosage: 3.75 G, BID
     Route: 048
     Dates: start: 201409

REACTIONS (7)
  - Apnoea [Recovered/Resolved]
  - Snoring [Not Recovered/Not Resolved]
  - Tonsillectomy [Unknown]
  - Pituitary tumour benign [Not Recovered/Not Resolved]
  - Migraine with aura [Recovering/Resolving]
  - Drug tolerance [Unknown]
  - Product preparation error [Unknown]

NARRATIVE: CASE EVENT DATE: 2013
